FAERS Safety Report 14892678 (Version 1)
Quarter: 2018Q2

REPORT INFORMATION
  Report Type: Report from Study
  Country: US (occurrence: US)
  Receive Date: 20180514
  Receipt Date: 20180514
  Transmission Date: 20180711
  Serious: Yes (Other)
  Sender: FDA-Public Use
  Company Number: US-GLAXOSMITHKLINE-US2018078472

PATIENT
  Age: 63 Year
  Sex: Male

DRUGS (2)
  1. ASPIRIN + CAFFEINE [Suspect]
     Active Substance: ASPIRIN\CAFFEINE
     Indication: HEADACHE
     Dosage: DAILY PACKET USE FOR 6 MONTHS
     Route: 048
  2. GOODYS [Suspect]
     Active Substance: ACETAMINOPHEN\ASPIRIN\CAFFEINE
     Indication: HEADACHE
     Dosage: DAILY PACKET USE FOR 6 MONTHS
     Route: 048

REACTIONS (1)
  - Cerebral haemorrhage [Unknown]
